FAERS Safety Report 13756011 (Version 1)
Quarter: 2017Q3

REPORT INFORMATION
  Report Type: Spontaneous
  Country: IN (occurrence: IN)
  Receive Date: 20170714
  Receipt Date: 20170714
  Transmission Date: 20171127
  Serious: Yes (Death, Other)
  Sender: FDA-Public Use
  Company Number: IN-SUN PHARMACEUTICAL INDUSTRIES LTD-2016R1-117019

PATIENT
  Age: 20 Year
  Sex: Male

DRUGS (2)
  1. IMATINIB [Suspect]
     Active Substance: IMATINIB
     Indication: CHRONIC MYELOID LEUKAEMIA
     Dosage: 600 MG, DAILY
     Route: 065
     Dates: start: 2002
  2. IMATINIB [Suspect]
     Active Substance: IMATINIB
     Dosage: 800 MG, DAILY
     Route: 065
     Dates: start: 2002

REACTIONS (3)
  - Gene mutation [Unknown]
  - Drug-disease interaction [Unknown]
  - Drug resistance [Unknown]
